FAERS Safety Report 19941518 (Version 1)
Quarter: 2021Q4

REPORT INFORMATION
  Report Type: Spontaneous
  Country: US (occurrence: US)
  Receive Date: 20211011
  Receipt Date: 20211011
  Transmission Date: 20220303
  Serious: No
  Sender: FDA-Public Use
  Company Number: US-JAZZ-2021-US-006822

PATIENT
  Sex: Female

DRUGS (3)
  1. SUNOSI [Suspect]
     Active Substance: SOLRIAMFETOL
     Indication: Somnolence
     Dosage: UNKNOWN DOSE AND FREQUENCY
     Route: 048
     Dates: end: 202107
  2. XYREM [Concomitant]
     Active Substance: SODIUM OXYBATE
  3. MELATONIN [Concomitant]
     Active Substance: MELATONIN

REACTIONS (2)
  - Anxiety [Recovering/Resolving]
  - Tremor [Recovering/Resolving]
